FAERS Safety Report 5964467-X (Version None)
Quarter: 2008Q4

REPORT INFORMATION
  Report Type: 
  Country: None (occurrence: None)
  Receive Date: 20081125
  Receipt Date: 20081112
  Transmission Date: 20090506
  Serious: Yes (Death)
  Sender: FDA-Public Use
  Company Number: CS-RANBAXY-2008US-19272

PATIENT

DRUGS (1)
  1. VERAPAMIL [Suspect]
     Indication: DRUG USE FOR UNKNOWN INDICATION
     Dosage: ABOUT 40 TABLETS
     Route: 048

REACTIONS (11)
  - ATRIOVENTRICULAR BLOCK [None]
  - AZOTAEMIA [None]
  - BRADYCARDIA [None]
  - COMPLETED SUICIDE [None]
  - DEHYDRATION [None]
  - ELECTROLYTE IMBALANCE [None]
  - HYPOTENSION [None]
  - LOSS OF CONSCIOUSNESS [None]
  - METABOLIC ACIDOSIS [None]
  - POISONING [None]
  - RESPIRATORY ARREST [None]
